FAERS Safety Report 13842002 (Version 1)
Quarter: 2017Q3

REPORT INFORMATION
  Report Type: Report from Study
  Country: US (occurrence: US)
  Receive Date: 20170807
  Receipt Date: 20170807
  Transmission Date: 20171127
  Serious: No
  Sender: FDA-Public Use
  Company Number: US-AMGEN-USASL2017098017

PATIENT
  Sex: Male

DRUGS (2)
  1. NPLATE [Suspect]
     Active Substance: ROMIPLOSTIM
     Dosage: 600 MCG, QWK
     Route: 065
     Dates: start: 2008
  2. NPLATE [Suspect]
     Active Substance: ROMIPLOSTIM
     Indication: IMMUNE THROMBOCYTOPENIC PURPURA
     Dosage: 700 MCG, QWK
     Route: 065

REACTIONS (4)
  - Musculoskeletal pain [Unknown]
  - Arthritis [Unknown]
  - Platelet count decreased [Unknown]
  - Posture abnormal [Unknown]
